FAERS Safety Report 23760933 (Version 2)
Quarter: 2024Q2

REPORT INFORMATION
  Report Type: Report from Study
  Country: JP (occurrence: JP)
  Receive Date: 20240419
  Receipt Date: 20240604
  Transmission Date: 20240716
  Serious: Yes (Death, Other)
  Sender: FDA-Public Use
  Company Number: JP-INSMED, INC.-2024-01549-JP

PATIENT
  Age: 73 Year
  Sex: Female
  Weight: 31 kg

DRUGS (7)
  1. ARIKAYCE [Suspect]
     Active Substance: AMIKACIN
     Indication: Mycobacterium avium complex infection
     Dosage: 590 MILLIGRAM, QD
     Route: 055
     Dates: start: 20240314, end: 20240330
  2. RIFAMPIN [Concomitant]
     Active Substance: RIFAMPIN
     Indication: Mycobacterium avium complex infection
     Dosage: 300 MILLIGRAM/DAY
     Route: 065
     Dates: start: 20170627, end: 20240407
  3. ETHAMBUTOL [Concomitant]
     Active Substance: ETHAMBUTOL HYDROCHLORIDE
     Indication: Mycobacterium avium complex infection
     Dosage: 500 MILLIGRAM/DAY
     Route: 065
     Dates: start: 20170627, end: 20240407
  4. AZITHROMYCIN [Concomitant]
     Active Substance: AZITHROMYCIN
     Indication: Mycobacterium avium complex infection
     Dosage: 250 MILLIGRAM/DAY
     Route: 065
     Dates: start: 20240209, end: 20240407
  5. LANSOPRAZOLE [Concomitant]
     Active Substance: LANSOPRAZOLE
     Indication: Prophylaxis
     Dosage: 15 MILLIGRAM/DAY
     Route: 048
     Dates: start: 20240131, end: 20240407
  6. SOLIFENACIN SUCCINATE [Concomitant]
     Active Substance: SOLIFENACIN SUCCINATE
     Indication: Prophylaxis
     Dosage: 5 MILLIGRAM/DAY
     Route: 048
     Dates: start: 20240206, end: 20240407
  7. POTASSIUM ASPARTATE [Concomitant]
     Active Substance: POTASSIUM ASPARTATE
     Indication: Product used for unknown indication
     Dosage: 1800 MILLIGRAM/DAY
     Route: 048
     Dates: end: 20240407

REACTIONS (1)
  - Mycobacterium avium complex infection [Fatal]

NARRATIVE: CASE EVENT DATE: 20240408
